FAERS Safety Report 10256334 (Version 1)
Quarter: 2014Q2

REPORT INFORMATION
  Report Type: Spontaneous
  Country: FR (occurrence: FR)
  Receive Date: 20140624
  Receipt Date: 20140624
  Transmission Date: 20141212
  Serious: Yes (Hospitalization)
  Sender: FDA-Public Use
  Company Number: FR-JNJFOC-20140207571

PATIENT
  Age: 65 Year
  Sex: Male

DRUGS (16)
  1. XARELTO [Suspect]
     Indication: PRODUCT USED FOR UNKNOWN INDICATION
     Route: 048
     Dates: start: 20130925, end: 20131029
  2. SUFENTA [Suspect]
     Indication: ANAESTHESIA
     Route: 042
     Dates: start: 20130924, end: 20130924
  3. PARACETAMOL [Suspect]
     Indication: POSTOPERATIVE ANALGESIA
     Route: 042
     Dates: start: 20130924, end: 20130926
  4. KETAMINE [Suspect]
     Indication: ANAESTHESIA
     Route: 042
     Dates: start: 20130924, end: 20130924
  5. EXACYL [Suspect]
     Indication: HAEMORRHAGE
     Route: 042
     Dates: start: 20130924, end: 20130924
  6. HYPNOVEL [Suspect]
     Indication: ANAESTHESIA
     Route: 042
     Dates: start: 20130924, end: 20130924
  7. DIPRIVAN [Suspect]
     Indication: ANAESTHESIA
     Route: 042
     Dates: start: 20130924, end: 20130924
  8. NIMBEX [Suspect]
     Indication: ANAESTHESIA
     Route: 042
     Dates: start: 20130924, end: 20130924
  9. ONDANSETRON [Suspect]
     Indication: PROCEDURAL VOMITING
     Route: 042
     Dates: start: 20130924, end: 20130924
  10. DEXAMETHASONE [Suspect]
     Indication: PROCEDURAL VOMITING
     Route: 042
     Dates: start: 20130924, end: 20130924
  11. MORPHINE [Suspect]
     Indication: POSTOPERATIVE ANALGESIA
     Route: 042
     Dates: start: 20130924, end: 20130925
  12. EUPANTOL [Suspect]
     Indication: PROPHYLAXIS AGAINST GASTROINTESTINAL ULCER
     Route: 048
     Dates: start: 20130925, end: 20130929
  13. NEFOPAM HYDROCHLORIDE [Suspect]
     Indication: POSTOPERATIVE ANALGESIA
     Route: 042
     Dates: start: 20130924, end: 20130926
  14. PROFENID [Suspect]
     Indication: PRODUCT USED FOR UNKNOWN INDICATION
     Route: 042
     Dates: start: 20130924, end: 20130926
  15. DROLEPTAN [Suspect]
     Indication: PROCEDURAL VOMITING
     Route: 042
     Dates: start: 20130924, end: 20130926
  16. TRIATEC [Concomitant]
     Route: 065

REACTIONS (1)
  - Mania [Recovered/Resolved]
